FAERS Safety Report 5073510-4 (Version None)
Quarter: 2006Q3

REPORT INFORMATION
  Report Type: 
  Country: None (occurrence: None)
  Receive Date: 20060717
  Receipt Date: 20051122
  Transmission Date: 20061208
  Serious: No
  Sender: FDA-Public Use
  Company Number: 2005002274

PATIENT
  Age: 72 Year
  Sex: Female

DRUGS (1)
  1. TRACEVA (TABLET) (ERLOTINIB) [Suspect]
     Indication: PANCREATIC CARCINOMA
     Dosage: 150 MG (QD), ORAL
     Route: 048

REACTIONS (8)
  - BURNING SENSATION [None]
  - ERYTHEMA [None]
  - EXFOLIATIVE RASH [None]
  - FACE OEDEMA [None]
  - RASH [None]
  - RASH PRURITIC [None]
  - SKIN BURNING SENSATION [None]
  - SUNBURN [None]
